FAERS Safety Report 6416170-X (Version None)
Quarter: 2009Q4

REPORT INFORMATION
  Report Type: 
  Country: None (occurrence: None)
  Receive Date: 20091027
  Receipt Date: 20091012
  Transmission Date: 20100525
  Serious: Yes (Other)
  Sender: FDA-Public Use
  Company Number: DK-NOVOPROD-289597

PATIENT
  Sex: Female
  Weight: 93 kg

DRUGS (5)
  1. LEVEMIR [Suspect]
     Indication: TYPE 1 DIABETES MELLITUS
     Dosage: 76 IU, QD
     Route: 058
  2. LEVEMIR [Suspect]
     Dosage: 106 IU, QD AT WEEK 38
     Route: 058
  3. NOVORAPID [Suspect]
     Indication: TYPE 1 DIABETES MELLITUS
     Dosage: 28 IU, QD
     Route: 058
  4. NOVORAPID [Suspect]
     Dosage: 24 IU, QD AT WEEK 38
     Route: 058
  5. METYLDOPA [Concomitant]
     Dosage: 250 MG X 3
     Route: 048
     Dates: start: 20080710, end: 20090130

REACTIONS (2)
  - DRUG EXPOSURE DURING PREGNANCY [None]
  - HYPERTENSION [None]
